FAERS Safety Report 25049510 (Version 2)
Quarter: 2025Q2

REPORT INFORMATION
  Report Type: Spontaneous
  Country: US (occurrence: None)
  Receive Date: 20250307
  Receipt Date: 20250620
  Transmission Date: 20250717
  Serious: Yes (Hospitalization, Other)
  Sender: EMMAUS LIFE SCIENCES
  Company Number: US-Emmaus Medical, Inc.-EMM202501-000005

PATIENT
  Age: 11 Year
  Sex: Female

DRUGS (2)
  1. ENDARI [Suspect]
     Active Substance: GLUTAMINE
     Indication: Sickle cell disease
     Route: 048
     Dates: start: 202212
  2. ENDARI [Suspect]
     Active Substance: GLUTAMINE
     Route: 048
     Dates: start: 2023

REACTIONS (3)
  - Migraine [Not Recovered/Not Resolved]
  - Sickle cell anaemia with crisis [Not Recovered/Not Resolved]
  - Acute chest syndrome [Unknown]

NARRATIVE: CASE EVENT DATE: 20241201
